FAERS Safety Report 20636076 (Version 1)
Quarter: 2022Q1

REPORT INFORMATION
  Report Type: Spontaneous
  Country: US (occurrence: None)
  Receive Date: 20220324
  Receipt Date: 20220324
  Transmission Date: 20220423
  Serious: Yes (Life-Threatening, Hospitalization, Disabling, Other)
  Sender: FDA-Public Use
  Company Number: None

PATIENT
  Age: 11 Year
  Sex: Male
  Weight: 42.75 kg

DRUGS (3)
  1. SINGULAIR [Suspect]
     Active Substance: MONTELUKAST SODIUM
     Indication: Hypersensitivity
     Dosage: FREQUENCY : AT BEDTIME;?
     Route: 048
     Dates: start: 20191022, end: 20220226
  2. SINGULAIR [Suspect]
     Active Substance: MONTELUKAST SODIUM
     Indication: Asthma
  3. kids multivitamin [Concomitant]

REACTIONS (9)
  - Psychotic disorder [None]
  - Obsessive-compulsive disorder [None]
  - Depression [None]
  - Anxiety [None]
  - Emotional disorder [None]
  - Paranoia [None]
  - Dissociative disorder [None]
  - Suicidal ideation [None]
  - Product complaint [None]

NARRATIVE: CASE EVENT DATE: 20220110
